FAERS Safety Report 10064560 (Version 3)
Quarter: 2014Q2

REPORT INFORMATION
  Report Type: Spontaneous
  Country: AT (occurrence: AT)
  Receive Date: 20140408
  Receipt Date: 20140513
  Transmission Date: 20141212
  Serious: Yes (Congenital Anomaly, Other)
  Sender: FDA-Public Use
  Company Number: AT-AMGEN-AUTSP2013043844

PATIENT
  Sex: Male
  Weight: 2.68 kg

DRUGS (1)
  1. ENBREL [Suspect]
     Indication: PRODUCT USED FOR UNKNOWN INDICATION
     Dosage: 50 MG, QWK
     Route: 063
     Dates: start: 2011

REACTIONS (3)
  - Maternal exposure during pregnancy [Unknown]
  - Exposure during breast feeding [Unknown]
  - Anomaly of external ear congenital [Unknown]
